FAERS Safety Report 11179115 (Version 1)
Quarter: 2015Q2

REPORT INFORMATION
  Report Type: Spontaneous
  Country: CA (occurrence: None)
  Receive Date: 20150527
  Receipt Date: 20150527
  Transmission Date: 20150821
  Serious: No
  Sender: FDA-Public Use
  Company Number: US-145536

PATIENT
  Sex: Female

DRUGS (2)
  1. ANTI-D (ANTI-D) (NOT SPECIFIED) [Suspect]
     Active Substance: HUMAN RHO(D) IMMUNE GLOBULIN
     Indication: PROPHYLAXIS
     Dates: start: 2005, end: 2005
  2. ANTI-D (ANTI-D) (NOT SPECIFIED) [Suspect]
     Active Substance: HUMAN RHO(D) IMMUNE GLOBULIN
     Indication: EXPOSURE DURING PREGNANCY
     Dates: start: 2005, end: 2005

REACTIONS (2)
  - Maternal exposure during pregnancy [None]
  - Alloimmunisation [None]

NARRATIVE: CASE EVENT DATE: 2005
